FAERS Safety Report 21189405 (Version 2)
Quarter: 2023Q1

REPORT INFORMATION
  Report Type: Spontaneous
  Country: CA (occurrence: CA)
  Receive Date: 20220809
  Receipt Date: 20230324
  Transmission Date: 20230418
  Serious: Yes (Hospitalization, Other)
  Sender: FDA-Public Use
  Company Number: CA-TEVA-2022-CA-2061379

PATIENT
  Age: 20 Year
  Sex: Male

DRUGS (26)
  1. ARIPIPRAZOLE [Suspect]
     Active Substance: ARIPIPRAZOLE
     Indication: Substance use
     Route: 065
  2. ARIPIPRAZOLE [Suspect]
     Active Substance: ARIPIPRAZOLE
     Indication: Social anxiety disorder
     Route: 065
  3. ARIPIPRAZOLE [Suspect]
     Active Substance: ARIPIPRAZOLE
     Indication: Schizophrenia
     Route: 065
  4. QUETIAPINE FUMARATE [Suspect]
     Active Substance: QUETIAPINE FUMARATE
     Indication: Substance use
     Route: 065
  5. QUETIAPINE FUMARATE [Suspect]
     Active Substance: QUETIAPINE FUMARATE
     Indication: Social anxiety disorder
     Dosage: 1000 MILLIGRAM DAILY;
     Route: 065
  6. QUETIAPINE FUMARATE [Suspect]
     Active Substance: QUETIAPINE FUMARATE
     Indication: Schizophrenia
     Route: 065
  7. QUETIAPINE FUMARATE [Suspect]
     Active Substance: QUETIAPINE FUMARATE
     Indication: Psychotic disorder
     Route: 065
  8. RISPERIDONE [Suspect]
     Active Substance: RISPERIDONE
     Indication: Substance use
     Route: 048
  9. RISPERIDONE [Suspect]
     Active Substance: RISPERIDONE
     Indication: Social anxiety disorder
     Route: 048
  10. RISPERIDONE [Suspect]
     Active Substance: RISPERIDONE
     Indication: Schizophrenia
     Route: 048
  11. SERTRALINE [Suspect]
     Active Substance: SERTRALINE HYDROCHLORIDE
     Indication: Social anxiety disorder
     Route: 065
  12. CLOZAPINE [Suspect]
     Active Substance: CLOZAPINE
     Indication: Schizophrenia
     Route: 065
  13. CLOZAPINE [Suspect]
     Active Substance: CLOZAPINE
     Route: 065
  14. CLOZAPINE [Suspect]
     Active Substance: CLOZAPINE
     Route: 065
  15. CLOZAPINE [Suspect]
     Active Substance: CLOZAPINE
     Route: 065
  16. CLOZAPINE [Suspect]
     Active Substance: CLOZAPINE
     Route: 065
  17. CLOZAPINE [Suspect]
     Active Substance: CLOZAPINE
     Dosage: 200 MILLIGRAM DAILY;
     Route: 065
  18. CLOZAPINE [Suspect]
     Active Substance: CLOZAPINE
     Route: 065
  19. RISPERDAL [Suspect]
     Active Substance: RISPERIDONE
     Indication: Substance use
     Route: 065
  20. RISPERDAL [Suspect]
     Active Substance: RISPERIDONE
     Indication: Social anxiety disorder
     Route: 065
  21. RISPERDAL [Suspect]
     Active Substance: RISPERIDONE
     Indication: Schizophrenia
     Dosage: 2 MILLIGRAM DAILY;
     Route: 048
  22. BENZTROPINE [Concomitant]
     Active Substance: BENZTROPINE
     Indication: Product used for unknown indication
  23. CLOZAPINE [Concomitant]
     Active Substance: CLOZAPINE
     Indication: Product used for unknown indication
  24. LORAZEPAM [Concomitant]
     Active Substance: LORAZEPAM
     Indication: Product used for unknown indication
     Route: 065
  25. PALIPERIDONE PALMITATE [Concomitant]
     Active Substance: PALIPERIDONE PALMITATE
     Indication: Product used for unknown indication
     Route: 030
  26. INVEGA [Concomitant]
     Active Substance: PALIPERIDONE
     Indication: Product used for unknown indication
     Route: 030

REACTIONS (7)
  - Blood creatine phosphokinase increased [Unknown]
  - Drug ineffective [Unknown]
  - Hallucination [Unknown]
  - Myalgia [Unknown]
  - Rhabdomyolysis [Unknown]
  - Treatment noncompliance [Unknown]
  - Weight increased [Not Recovered/Not Resolved]
